FAERS Safety Report 5526009-2 (Version None)
Quarter: 2007Q4

REPORT INFORMATION
  Report Type: 
  Country: None (occurrence: None)
  Receive Date: 20071126
  Receipt Date: 20071120
  Transmission Date: 20080405
  Serious: Yes (Life-Threatening)
  Sender: FDA-Public Use
  Company Number: UA-BOEHRINGER INGELHEIM PHARMACEUTICALS, INC.-2007-AP-00332AP

PATIENT
  Age: 58 Year
  Sex: Male

DRUGS (2)
  1. MOVALIS [Suspect]
     Indication: OSTEOCHONDROSIS
     Route: 042
     Dates: start: 20071023, end: 20071025
  2. SIRDALUD [Concomitant]
     Indication: OSTEOCHONDROSIS
     Dates: start: 20071023, end: 20071025

REACTIONS (1)
  - DYSPNOEA [None]
